FAERS Safety Report 4462432-5 (Version None)
Quarter: 2004Q3

REPORT INFORMATION
  Report Type: 
  Country: None (occurrence: None)
  Receive Date: 20040928
  Receipt Date: 20040914
  Transmission Date: 20050211
  Serious: Yes (Hospitalization)
  Sender: FDA-Public Use
  Company Number: STA-AE-04-MTX-411

PATIENT
  Age: 68 Year
  Sex: Male

DRUGS (9)
  1. RHEUMATREX [Suspect]
     Indication: RHEUMATOID ARTHRITIS
     Dosage: 4 MG 1 X 1X PER 1 WK, ORAL
     Route: 048
     Dates: start: 20040526, end: 20040720
  2. RHEUMATREX [Suspect]
     Indication: RHEUMATOID ARTHRITIS
     Dosage: 6 MG 1 X PER 1 WK, ORAL
     Route: 048
     Dates: start: 20040721, end: 20040730
  3. VOLTAREN [Concomitant]
  4. PREDNISOLONE [Concomitant]
  5. COMELIAN (DILAZEP DIHYDROCHLORIDE) [Concomitant]
  6. TIZANIDINE HCL [Concomitant]
  7. SELBEX (TEPRENONE) [Concomitant]
  8. TOWARAT (NIFEDIPINE) [Concomitant]
  9. CAPTOPRIL [Concomitant]

REACTIONS (2)
  - CHEST PAIN [None]
  - INTERSTITIAL LUNG DISEASE [None]
